FAERS Safety Report 25576459 (Version 1)
Quarter: 2025Q3

REPORT INFORMATION
  Report Type: Spontaneous
  Country: US (occurrence: US)
  Receive Date: 20250718
  Receipt Date: 20250718
  Transmission Date: 20251021
  Serious: No
  Sender: ELI LILLY AND COMPANY
  Company Number: US-ELI_LILLY_AND_COMPANY-US202507012668

PATIENT
  Age: 52 Year
  Sex: Female

DRUGS (2)
  1. HUMALOG [Suspect]
     Active Substance: INSULIN LISPRO
     Indication: Product used for unknown indication
     Route: 065
     Dates: start: 2022
  2. HUMALOG [Suspect]
     Active Substance: INSULIN LISPRO
     Route: 065
     Dates: start: 2022

REACTIONS (3)
  - Mental impairment [Unknown]
  - Memory impairment [Unknown]
  - Neuropathy peripheral [Unknown]
